FAERS Safety Report 14760497 (Version 1)
Quarter: 2018Q2

REPORT INFORMATION
  Report Type: Spontaneous
  Country: US (occurrence: US)
  Receive Date: 20180414
  Receipt Date: 20180414
  Transmission Date: 20180711
  Serious: No
  Sender: FDA-Public Use
  Company Number: US-009507513-1804USA002000

PATIENT
  Age: 43 Year
  Sex: Female

DRUGS (1)
  1. NEXPLANON [Suspect]
     Active Substance: ETONOGESTREL
     Dosage: 1 DF, IN RIGHT ARM (NON-DOMINANT)
     Route: 059
     Dates: start: 201802, end: 20180326

REACTIONS (5)
  - Pain in extremity [Unknown]
  - Musculoskeletal pain [Unknown]
  - Complication associated with device [Recovered/Resolved]
  - Implant site pain [Unknown]
  - Device deployment issue [Recovered/Resolved]

NARRATIVE: CASE EVENT DATE: 2018
